FAERS Safety Report 7242249-9 (Version None)
Quarter: 2011Q1

REPORT INFORMATION
  Report Type: 
  Country: None (occurrence: None)
  Receive Date: 20110124
  Receipt Date: 20110118
  Transmission Date: 20110831
  Serious: Yes (Hospitalization)
  Sender: FDA-Public Use
  Company Number: JP-SANOFI-AVENTIS-2010SA074864

PATIENT
  Age: 85 Year
  Sex: Female
  Weight: 56 kg

DRUGS (5)
  1. ASPIRIN [Concomitant]
     Route: 048
     Dates: end: 20100820
  2. PLAVIX [Suspect]
     Route: 048
     Dates: start: 20091010, end: 20100820
  3. PLAVIX [Suspect]
     Route: 048
     Dates: start: 20100827
  4. ASPIRIN [Concomitant]
     Route: 048
     Dates: start: 20100827
  5. WARFARIN [Concomitant]

REACTIONS (5)
  - DIARRHOEA [None]
  - VOMITING [None]
  - LOWER GASTROINTESTINAL HAEMORRHAGE [None]
  - ANAEMIA [None]
  - MELAENA [None]
